FAERS Safety Report 6391460-8 (Version None)
Quarter: 2009Q4

REPORT INFORMATION
  Report Type: 
  Country: None (occurrence: None)
  Receive Date: 20091007
  Receipt Date: 20090928
  Transmission Date: 20100525
  Serious: Yes (Hospitalization)
  Sender: FDA-Public Use
  Company Number: US-BRISTOL-MYERS SQUIBB COMPANY-14803886

PATIENT
  Age: 49 Year
  Sex: Female

DRUGS (3)
  1. ABILIFY [Suspect]
     Indication: SCHIZOPHRENIA
     Dates: start: 20090916
  2. ATIVAN [Concomitant]
     Dates: start: 20090819
  3. AMBIEN [Concomitant]
     Dates: start: 20090909

REACTIONS (1)
  - PSYCHOTIC DISORDER [None]
